FAERS Safety Report 17446331 (Version 1)
Quarter: 2020Q1

REPORT INFORMATION
  Report Type: Spontaneous
  Country: GB (occurrence: GB)
  Receive Date: 20200221
  Receipt Date: 20200221
  Transmission Date: 20200409
  Serious: Yes (Death, Other)
  Sender: FDA-Public Use
  Company Number: GB-MYLANLABS-2020M1019487

PATIENT
  Age: 14 Year
  Sex: Female

DRUGS (15)
  1. FLUCLOXACILLIN [Suspect]
     Active Substance: FLUCLOXACILLIN
     Indication: ACUTE LYMPHOCYTIC LEUKAEMIA
     Dosage: 5 GRAM (DRUG START PERIOD 43 (DAYS))
     Route: 042
     Dates: start: 20000428
  2. ETOPOSIDE. [Suspect]
     Active Substance: ETOPOSIDE
     Indication: ACUTE LYMPHOCYTIC LEUKAEMIA
     Dosage: 420 MILLIGRAM (DRUG START PERIOD 18 (DAYS), DRUG LAST PERIOD 8 (DAYS))
     Route: 042
     Dates: start: 20000523, end: 20000602
  3. ASPARAGINASE [Suspect]
     Active Substance: ASPARAGINASE
     Indication: ACUTE LYMPHOCYTIC LEUKAEMIA
     Dosage: 3500 INTERNATIONAL UNIT, QD (DRUG START PERIOD 46 (DAYS), DRUG LAST PERIOD 4 (DAYS))
     Route: 042
     Dates: start: 20000425, end: 20000606
  4. PARACETAMOL [Suspect]
     Active Substance: ACETAMINOPHEN
     Indication: ACUTE LYMPHOCYTIC LEUKAEMIA
     Dosage: 2 GRAM (DRUG START PERIOD 43 (DAYS),  DRUG LAST PERIOD 39 (DAYS))
     Route: 048
     Dates: start: 20000428, end: 20000502
  5. METHOTREXATE. [Suspect]
     Active Substance: METHOTREXATE
     Indication: ACUTE LYMPHOCYTIC LEUKAEMIA
     Dosage: 12.5 MILLIGRAM (DRUG START PERIOD 57 (DAYS), DRUG LAST PERIOD 30 (DAYS))
     Route: 037
     Dates: start: 20000414, end: 20000511
  6. FLUCONAZOLE. [Suspect]
     Active Substance: FLUCONAZOLE
     Indication: ACUTE LYMPHOCYTIC LEUKAEMIA
     Dosage: 100 MILLIGRAM
     Route: 048
     Dates: start: 20000429, end: 20000503
  7. CHLORPHENIRAMINE                   /00072501/ [Suspect]
     Active Substance: CHLORPHENIRAMINE
     Indication: ACUTE LYMPHOCYTIC LEUKAEMIA
     Dosage: 5 MILLIGRAM (DRUG START PERIOD 30 (DAYS) , DRUG LAST PERIOD 29 (DAYS))
     Route: 042
     Dates: start: 20000511, end: 20000512
  8. SULPHAMETHOXAZOLE/TRIMETHOPRIM [Suspect]
     Active Substance: SULFAMETHOXAZOLE\TRIMETHOPRIM
     Indication: ACUTE LYMPHOCYTIC LEUKAEMIA
     Dosage: 960 MILLIGRAM (DRUG START PERIOD 18 (DAYS),)
     Route: 048
     Dates: start: 20000523, end: 20000610
  9. CEFTAZIDIME. [Suspect]
     Active Substance: CEFTAZIDIME
     Indication: ACUTE LYMPHOCYTIC LEUKAEMIA
     Dosage: 6.6 GRAM (DRUG START PERIOD 43 (DAYS))
     Route: 042
     Dates: start: 20000428
  10. DEXAMETHASONE SODIUM PHOSPHATE. [Suspect]
     Active Substance: DEXAMETHASONE SODIUM PHOSPHATE
     Indication: ACUTE LYMPHOCYTIC LEUKAEMIA
     Dosage: 14 MILLIGRAM (DRUG START PERIOD 4 (DAYS))
     Route: 048
     Dates: start: 20000606, end: 20000610
  11. RANITIDINE. [Suspect]
     Active Substance: RANITIDINE
     Indication: ACUTE LYMPHOCYTIC LEUKAEMIA
     Dosage: 300 MILLIGRAM (DRUG START PERIOD 4 (DAYS))
     Route: 048
     Dates: start: 20000606, end: 20000610
  12. ACICLOVIR [Suspect]
     Active Substance: ACYCLOVIR
     Indication: ACUTE LYMPHOCYTIC LEUKAEMIA
     Dosage: 2 GRAM, QD (DRUG START PERIOD 43 (DAYS), DRUG LAST PERIOD 39 (DAYS))
     Route: 048
     Dates: start: 20000428, end: 20000502
  13. HYDROCORTISONE. [Suspect]
     Active Substance: HYDROCORTISONE
     Indication: ACUTE LYMPHOCYTIC LEUKAEMIA
     Dosage: 50 MILLIGRAM (DRUG START PERIOD 30 (DAYS))
     Route: 042
     Dates: start: 20000511
  14. ALLOPURINOL. [Suspect]
     Active Substance: ALLOPURINOL
     Indication: ACUTE LYMPHOCYTIC LEUKAEMIA
     Dosage: 150 MILLIGRAM, QD (DRUG START PERIOD 58 (DAYS),  DRUG LAST PERIOD 53 (DAYS))
     Route: 048
     Dates: start: 20000413, end: 20000418
  15. VINCRISTINE SULFATE. [Suspect]
     Active Substance: VINCRISTINE SULFATE
     Indication: ACUTE LYMPHOCYTIC LEUKAEMIA
     Dosage: 2 MILLIGRAM (DRUG START PERIOD 57 (DAYS), DRUG LAST PERIOD 4 (DAYS))
     Route: 042
     Dates: start: 20000414, end: 20000606

REACTIONS (7)
  - Cytopenia [Unknown]
  - Staphylococcal infection [Unknown]
  - Respiratory tract haemorrhage [Fatal]
  - Off label use [Unknown]
  - Pulmonary haemorrhage [Fatal]
  - Drug ineffective for unapproved indication [Fatal]
  - Condition aggravated [Unknown]

NARRATIVE: CASE EVENT DATE: 2000
